FAERS Safety Report 24860927 (Version 1)
Quarter: 2025Q1

REPORT INFORMATION
  Report Type: Spontaneous
  Country: GB (occurrence: GB)
  Receive Date: 20250120
  Receipt Date: 20250120
  Transmission Date: 20250409
  Serious: Yes (Other)
  Sender: AUROBINDO
  Company Number: GB-AUROBINDO-AUR-APL-2025-002977

PATIENT
  Sex: Female

DRUGS (7)
  1. CINACALCET HYDROCHLORIDE [Suspect]
     Active Substance: CINACALCET HYDROCHLORIDE
     Indication: Hereditary hypophosphataemic rickets
     Dosage: 4 MILLIGRAM/KILOGRAM, TWO TIMES A DAY ()
     Route: 065
  2. CINACALCET HYDROCHLORIDE [Suspect]
     Active Substance: CINACALCET HYDROCHLORIDE
     Indication: Hypercalcaemia
     Dosage: 1 MILLIGRAM/KILOGRAM, ONCE A DAY (15 MG TWICE A DAY)
     Route: 065
  3. CINACALCET HYDROCHLORIDE [Suspect]
     Active Substance: CINACALCET HYDROCHLORIDE
     Indication: Hyperparathyroidism
  4. UNSPECIFIED INGREDIENT [Concomitant]
     Active Substance: UNSPECIFIED INGREDIENT
     Indication: Hereditary hypophosphataemic rickets
     Route: 048
  5. VITAMIN D [Concomitant]
     Active Substance: VITAMIN D NOS
     Indication: Hereditary hypophosphataemic rickets
     Route: 065
  6. BUROSUMAB [Concomitant]
     Active Substance: BUROSUMAB
     Indication: Hereditary hypophosphataemic rickets
     Route: 058
  7. BUROSUMAB [Concomitant]
     Active Substance: BUROSUMAB
     Route: 058

REACTIONS (1)
  - Drug ineffective [Unknown]
